FAERS Safety Report 9308044 (Version 1)
Quarter: 2013Q2

REPORT INFORMATION
  Report Type: Spontaneous
  Country: BR (occurrence: BR)
  Receive Date: 20130524
  Receipt Date: 20130524
  Transmission Date: 20140414
  Serious: Yes (Other)
  Sender: FDA-Public Use
  Company Number: BR-SANOFI-AVENTIS-2013SA050706

PATIENT
  Age: 45 Year
  Sex: Female
  Weight: 85 kg

DRUGS (5)
  1. LANTUS [Suspect]
     Indication: TYPE 1 DIABETES MELLITUS
     Route: 058
     Dates: start: 2009
  2. AUTOPEN 24 [Concomitant]
     Indication: DEVICE THERAPY
  3. JANUVIA [Concomitant]
     Indication: RENAL DISORDER
     Dosage: STRENGTH: 100 MG
     Route: 048
     Dates: start: 2010
  4. JANUVIA [Concomitant]
     Indication: DIABETES MELLITUS
     Dosage: STRENGTH: 100 MG
     Route: 048
     Dates: start: 2010
  5. RASILEZ [Concomitant]
     Indication: BLOOD PRESSURE
     Dosage: STRENGTH: 300 MG
     Route: 048
     Dates: start: 2010

REACTIONS (4)
  - Eye haemorrhage [Not Recovered/Not Resolved]
  - Hypoglycaemia [Not Recovered/Not Resolved]
  - Hypoaesthesia oral [Not Recovered/Not Resolved]
  - Pharyngeal hypoaesthesia [Not Recovered/Not Resolved]
